FAERS Safety Report 8449751-2 (Version None)
Quarter: 2012Q2

REPORT INFORMATION
  Report Type: 
  Country: None (occurrence: None)
  Receive Date: 20120613
  Receipt Date: 20120605
  Transmission Date: 20120825
  Serious: Yes (Other)
  Sender: FDA-Public Use
  Company Number: AUR-APL-2012-02572

PATIENT
  Age: 52 Year
  Sex: Male

DRUGS (3)
  1. FLUCONAZOLE [Suspect]
     Indication: PRODUCT USED FOR UNKNOWN INDICATION
  2. FLUTICASONE PROPIONATE [Suspect]
     Indication: BRONCHITIS CHRONIC
  3. RITONAVIR [Suspect]
     Indication: HIV INFECTION

REACTIONS (6)
  - FATIGUE [None]
  - MALAISE [None]
  - SECONDARY ADRENOCORTICAL INSUFFICIENCY [None]
  - CANDIDIASIS [None]
  - CUSHING'S SYNDROME [None]
  - OEDEMA PERIPHERAL [None]
